FAERS Safety Report 5460341-6 (Version None)
Quarter: 2007Q3

REPORT INFORMATION
  Report Type: 
  Country: None (occurrence: None)
  Receive Date: 20070919
  Receipt Date: 20070724
  Transmission Date: 20080115
  Serious: Yes (Hospitalization)
  Sender: FDA-Public Use
  Company Number: US-ASTRAZENECA-2007UW15712

PATIENT
  Age: 16 Year
  Sex: Male
  Weight: 61.4 kg

DRUGS (7)
  1. SEROQUEL [Suspect]
     Indication: BIPOLAR DISORDER
     Route: 048
  2. SEROQUEL [Suspect]
     Route: 048
  3. DEPAKOTE ER [Concomitant]
     Indication: BIPOLAR DISORDER
     Route: 048
  4. DEPAKOTE ER [Concomitant]
     Route: 048
  5. PROTONIX [Concomitant]
     Route: 048
  6. ZANTAC 150 [Concomitant]
     Route: 048
  7. ZANTAC 150 [Concomitant]
     Route: 048

REACTIONS (5)
  - OVERDOSE [None]
  - PAIN OF SKIN [None]
  - PARAESTHESIA [None]
  - SEDATION [None]
  - SUICIDE ATTEMPT [None]
